FAERS Safety Report 20729426 (Version 1)
Quarter: 2022Q2

REPORT INFORMATION
  Report Type: Report from Study
  Country: DE (occurrence: None)
  Receive Date: 20220420
  Receipt Date: 20220420
  Transmission Date: 20220721
  Serious: Yes (Hospitalization)
  Sender: FDA-Public Use
  Company Number: DE-ROCHE-3073975

PATIENT
  Age: 49 Year
  Sex: Female
  Weight: 61 kg

DRUGS (21)
  1. ATEZOLIZUMAB [Suspect]
     Active Substance: ATEZOLIZUMAB
     Indication: Triple negative breast cancer
     Dosage: 04/MAR/2022:DATE OF LAST DOSE PRIOR TO SAE
     Route: 041
     Dates: start: 20211112
  2. PACLITAXEL [Suspect]
     Active Substance: PACLITAXEL
     Indication: Triple negative breast cancer
     Dosage: 24/FEB/2022:DATE OF LAST DOSE PRIOR TO SAE
     Route: 042
     Dates: start: 20211126
  3. CARBOPLATIN [Suspect]
     Active Substance: CARBOPLATIN
     Indication: Triple negative breast cancer
     Dosage: 24/FEB/2022: DATE OF LAST DOSE PRIOR TO SAE
     Route: 042
     Dates: start: 20211126
  4. CYCLOPHOSPHAMIDE [Suspect]
     Active Substance: CYCLOPHOSPHAMIDE
     Indication: Triple negative breast cancer
     Route: 042
     Dates: start: 20220304
  5. EPIRUBICIN [Suspect]
     Active Substance: EPIRUBICIN
     Indication: Triple negative breast cancer
     Route: 042
     Dates: start: 20220304
  6. DEXAMETHASONE [Concomitant]
     Active Substance: DEXAMETHASONE
     Dates: start: 20211126, end: 20211126
  7. DEXAMETHASONE [Concomitant]
     Active Substance: DEXAMETHASONE
     Dates: start: 20211125
  8. DEXAMETHASONE [Concomitant]
     Active Substance: DEXAMETHASONE
     Dates: start: 20211202, end: 20211219
  9. CLEMASTINE [Concomitant]
     Active Substance: CLEMASTINE
     Dates: start: 20211126, end: 20211126
  10. CLEMASTINE [Concomitant]
     Active Substance: CLEMASTINE
     Dates: start: 20211125
  11. BUTYLSCOPOLAMINIUMBROMID [Concomitant]
     Dates: start: 20211202
  12. APREPITANT [Concomitant]
     Active Substance: APREPITANT
     Dates: start: 20211125, end: 20211125
  13. APREPITANT [Concomitant]
     Active Substance: APREPITANT
     Dates: start: 20211202
  14. APREPITANT [Concomitant]
     Active Substance: APREPITANT
     Dates: start: 20211203
  15. PANTOPRAZOLE [Concomitant]
     Active Substance: PANTOPRAZOLE
     Dates: start: 20211125
  16. GRANISETRONE [Concomitant]
     Dates: start: 20211125
  17. CHOLECALCIFEROL [Concomitant]
     Active Substance: CHOLECALCIFEROL
     Dates: start: 20211112
  18. METOCLOPRAMIDE [Concomitant]
     Active Substance: METOCLOPRAMIDE
     Dates: start: 20211026
  19. ONDANSETRON [Concomitant]
     Active Substance: ONDANSETRON
     Dates: start: 20211126
  20. FILGRASTIM [Concomitant]
     Active Substance: FILGRASTIM
     Dates: start: 20211209
  21. COMIRNATY [Concomitant]
     Active Substance: TOZINAMERAN
     Dates: start: 20211206, end: 20211206

REACTIONS (1)
  - Febrile neutropenia [Not Recovered/Not Resolved]

NARRATIVE: CASE EVENT DATE: 20220310
